FAERS Safety Report 8880782 (Version 3)
Quarter: 2013Q2

REPORT INFORMATION
  Report Type: Spontaneous
  Country: BR (occurrence: BR)
  Receive Date: 20121101
  Receipt Date: 20130416
  Transmission Date: 20140414
  Serious: Yes (Hospitalization, Other)
  Sender: FDA-Public Use
  Company Number: BR-GLAXOSMITHKLINE-B0841431A

PATIENT
  Age: 59 Year
  Sex: Female
  Weight: 80 kg

DRUGS (7)
  1. RITMONORM (PROPAFENONE 300MG) [Suspect]
     Indication: ARRHYTHMIA
     Dosage: 150MG PER DAY
     Route: 048
     Dates: start: 20120801
  2. SYNTHROID [Suspect]
     Indication: THYROIDECTOMY
     Dosage: 112MG PER DAY
     Route: 048
     Dates: start: 2010
  3. ANCORON [Suspect]
     Indication: PRODUCT USED FOR UNKNOWN INDICATION
  4. LEXOTAN [Concomitant]
     Indication: INSOMNIA
     Dosage: 6MG AT NIGHT
     Route: 048
  5. ZOLPIDEM [Concomitant]
     Dosage: 10MG PER DAY
     Route: 048
  6. ZOMETA [Concomitant]
     Route: 042
     Dates: start: 201208
  7. VYTORIN [Concomitant]
     Indication: BLOOD CHOLESTEROL INCREASED
     Route: 048

REACTIONS (11)
  - Metastases to spine [Unknown]
  - Spinal fracture [Unknown]
  - Arrhythmia [Recovered/Resolved]
  - Blood pressure fluctuation [Recovered/Resolved]
  - Heart rate increased [Recovered/Resolved]
  - Osteoarthritis [Not Recovered/Not Resolved]
  - Dizziness [Recovered/Resolved]
  - Fall [Unknown]
  - Device failure [Unknown]
  - Syncope [Recovered/Resolved]
  - Chest pain [Unknown]
